FAERS Safety Report 9370002 (Version 1)
Quarter: 2013Q2

REPORT INFORMATION
  Report Type: Report from Study
  Country: JP (occurrence: JP)
  Receive Date: 20130626
  Receipt Date: 20130626
  Transmission Date: 20140414
  Serious: Yes (Death)
  Sender: FDA-Public Use
  Company Number: JP-AMGEN-JPNCT2013044714

PATIENT
  Age: 57 Year
  Sex: Female
  Weight: 60 kg

DRUGS (8)
  1. PANITUMUMAB [Suspect]
     Indication: COLORECTAL CANCER
     Dosage: 270 MG, Q2WK
     Route: 041
     Dates: start: 20120308, end: 20120308
  2. AMINO ACIDS NOS W/CARBOHYDRATES NOS [Concomitant]
     Dosage: UNK DF, UNK
     Route: 042
  3. NEOPHAGEN [Concomitant]
     Indication: HEPATIC FUNCTION ABNORMAL
     Dosage: 40 ML, UNK
     Route: 042
  4. DECADRON [Concomitant]
     Indication: HEPATIC FUNCTION ABNORMAL
     Dosage: 6.6 MG, UNK
     Route: 065
  5. SULPERAZON [Concomitant]
     Indication: HEPATIC FUNCTION ABNORMAL
     Dosage: 2 G, UNK
     Route: 042
  6. OXYCONTIN [Concomitant]
     Dosage: 10 MG, UNK
     Route: 048
  7. FUNGIZONE [Concomitant]
     Dosage: 3 ML, UNK
     Route: 048
  8. FUROSEMIDE [Concomitant]
     Indication: OEDEMA
     Dosage: 20 MG, QD
     Dates: start: 20120316

REACTIONS (1)
  - Hepatic failure [Fatal]
